FAERS Safety Report 4681289-0 (Version None)
Quarter: 2005Q2

REPORT INFORMATION
  Report Type: 
  Country: None (occurrence: None)
  Receive Date: 20050603
  Receipt Date: 20050530
  Transmission Date: 20051028
  Serious: Yes (Other)
  Sender: FDA-Public Use
  Company Number: DE-ROCHE-405987

PATIENT
  Sex: Male

DRUGS (3)
  1. CELLCEPT [Suspect]
     Route: 065
  2. CYCLOSPORINE [Suspect]
     Route: 065
  3. TACROLIMUS [Suspect]
     Route: 065

REACTIONS (1)
  - HAEMOLYSIS [None]
